FAERS Safety Report 16216807 (Version 1)
Quarter: 2019Q2

REPORT INFORMATION
  Report Type: Spontaneous
  Country: US (occurrence: US)
  Receive Date: 20190315
  Receipt Date: 20190315
  Transmission Date: 20190711
  Serious: No
  Sender: FDA-Public Use
  Company Number: None

PATIENT
  Age: 60 Year
  Sex: Male

DRUGS (1)
  1. INLYTA [Suspect]
     Active Substance: AXITINIB
     Dates: start: 201902

REACTIONS (4)
  - Product use complaint [None]
  - Blood pressure increased [None]
  - Dysphonia [None]
  - Decreased appetite [None]

NARRATIVE: CASE EVENT DATE: 20190315
